FAERS Safety Report 8125987-5 (Version None)
Quarter: 2012Q1

REPORT INFORMATION
  Report Type: 
  Country: None (occurrence: None)
  Receive Date: 20120209
  Receipt Date: 20120203
  Transmission Date: 20120608
  Serious: Yes (Hospitalization)
  Sender: FDA-Public Use
  Company Number: US-AMGEN-USASP2012007640

PATIENT

DRUGS (2)
  1. ARANESP [Suspect]
     Indication: RENAL FAILURE CHRONIC
     Dosage: UNK
     Dates: start: 20120125
  2. ARANESP [Suspect]
     Indication: DIALYSIS
     Dosage: 25 MUG, UNK
     Dates: start: 20120202

REACTIONS (2)
  - INCORRECT DOSE ADMINISTERED [None]
  - LOCALISED INFECTION [None]
